FAERS Safety Report 9784179 (Version 2)
Quarter: 2014Q1

REPORT INFORMATION
  Report Type: Spontaneous
  Country: US (occurrence: US)
  Receive Date: 20131226
  Receipt Date: 20140129
  Transmission Date: 20141002
  Serious: No
  Sender: FDA-Public Use
  Company Number: US-009507513-1312USA011282

PATIENT
  Sex: Female

DRUGS (3)
  1. COSOPT [Suspect]
     Dosage: UNK
     Route: 047
  2. DORZOLAMIDE HYDROCHLORIDE (+) TIMOLOL MALEATE [Suspect]
     Route: 047
  3. COMBIGAN [Suspect]
     Dosage: UNK

REACTIONS (4)
  - Drug hypersensitivity [Unknown]
  - Drug intolerance [Unknown]
  - Keratitis [Unknown]
  - Drug ineffective [Unknown]
